FAERS Safety Report 6613105-1 (Version None)
Quarter: 2010Q1

REPORT INFORMATION
  Report Type: 
  Country: None (occurrence: None)
  Receive Date: 20100223
  Receipt Date: 20100212
  Transmission Date: 20100710
  Serious: Yes (Death)
  Sender: FDA-Public Use
  Company Number: 007169

PATIENT
  Sex: Female

DRUGS (2)
  1. KEPPRA [Suspect]
     Dosage: ORAL
     Route: 048
     Dates: end: 20091201
  2. CLONAZEPAM [Concomitant]

REACTIONS (1)
  - THROMBOCYTOPENIA [None]
